FAERS Safety Report 25398275 (Version 2)
Quarter: 2025Q2

REPORT INFORMATION
  Report Type: Spontaneous
  Country: US (occurrence: US)
  Receive Date: 20250604
  Receipt Date: 20250614
  Transmission Date: 20250717
  Serious: No
  Sender: SANOFI AVENTIS
  Company Number: US-SA-2025SA157165

PATIENT
  Age: 54 Year
  Sex: Male

DRUGS (2)
  1. DUPIXENT [Suspect]
     Active Substance: DUPILUMAB
     Indication: Eczema
     Route: 058
     Dates: start: 202503, end: 202503
  2. DUPIXENT [Suspect]
     Active Substance: DUPILUMAB
     Indication: Dermatitis atopic
     Dosage: 300 MG, QOW
     Route: 058
     Dates: start: 202503

REACTIONS (12)
  - Influenza [Recovered/Resolved]
  - Pyrexia [Recovered/Resolved]
  - Fatigue [Recovered/Resolved]
  - Nasopharyngitis [Recovered/Resolved]
  - Head discomfort [Recovered/Resolved]
  - Dermatitis atopic [Unknown]
  - Rash [Not Recovered/Not Resolved]
  - Dry skin [Unknown]
  - Erythema [Unknown]
  - Skin irritation [Unknown]
  - Pruritus [Unknown]
  - Skin fissures [Unknown]

NARRATIVE: CASE EVENT DATE: 20250101
